FAERS Safety Report 12419427 (Version 1)
Quarter: 2016Q2

REPORT INFORMATION
  Report Type: Spontaneous
  Country: CA (occurrence: None)
  Receive Date: 20160527
  Receipt Date: 20160527
  Transmission Date: 20160815
  Serious: Yes (Hospitalization, Other)
  Sender: FDA-Public Use
  Company Number: None

PATIENT
  Age: 57 Year
  Sex: Female
  Weight: 73 kg

DRUGS (1)
  1. NIVOLUMAB [Suspect]
     Active Substance: NIVOLUMAB
     Indication: LUNG ADENOCARCINOMA
     Route: 040
     Dates: start: 20160422

REACTIONS (4)
  - Confusional state [None]
  - Seizure [None]
  - Limbic encephalitis [None]
  - Mental status changes [None]

NARRATIVE: CASE EVENT DATE: 20160428
